FAERS Safety Report 9146100 (Version 1)
Quarter: 2013Q1

REPORT INFORMATION
  Report Type: Spontaneous
  Country: AR (occurrence: AR)
  Receive Date: 20130307
  Receipt Date: 20130307
  Transmission Date: 20140127
  Serious: Yes (Hospitalization, Other)
  Sender: FDA-Public Use
  Company Number: PHHY2013AR021335

PATIENT
  Sex: Female

DRUGS (2)
  1. LUCENTIS [Suspect]
     Indication: MACULOPATHY
     Dosage: 1 DF, QMO
     Dates: start: 2011
  2. EXFORGE [Suspect]
     Indication: HYPERTENSION
     Dosage: 2 DF, DAILY
     Route: 048

REACTIONS (3)
  - VIIth nerve paralysis [Recovered/Resolved]
  - Gastric disorder [Recovered/Resolved]
  - Visual acuity reduced [Not Recovered/Not Resolved]
